FAERS Safety Report 8248773 (Version 9)
Quarter: 2013Q2

REPORT INFORMATION
  Report Type: Report from Study
  Country: BE (occurrence: BE)
  Receive Date: 20111117
  Receipt Date: 20130416
  Transmission Date: 20140414
  Serious: Yes (Hospitalization, Other)
  Sender: FDA-Public Use
  Company Number: PHHY2011BE100221

PATIENT
  Age: 48 Year
  Sex: Male

DRUGS (4)
  1. GILENYA [Suspect]
     Indication: RELAPSING-REMITTING MULTIPLE SCLEROSIS
     Dosage: 0.5 MG, QD
     Route: 048
     Dates: start: 20110817
  2. DIPHANTOINE [Suspect]
     Indication: GRAND MAL CONVULSION
     Dosage: 100 MG, QID
  3. DIPHANTOINE [Suspect]
     Dosage: 300MG TO 400 MG, UNK
  4. DIPHANTOINE [Suspect]
     Dosage: 400 MG, DAILY

REACTIONS (6)
  - Grand mal convulsion [Recovering/Resolving]
  - Loss of consciousness [Recovered/Resolved]
  - Convulsion [Recovered/Resolved]
  - Muscle rigidity [Recovered/Resolved]
  - Confusional state [Unknown]
  - Somnolence [Recovered/Resolved]
